FAERS Safety Report 5074502-1 (Version None)
Quarter: 2006Q3

REPORT INFORMATION
  Report Type: 
  Country: None (occurrence: None)
  Receive Date: 20060714
  Receipt Date: 20060505
  Transmission Date: 20061208
  Serious: No
  Sender: FDA-Public Use
  Company Number: 2006SP001955

PATIENT
  Age: 73 Year
  Sex: Female
  Weight: 69.1735 kg

DRUGS (4)
  1. LUNESTA [Suspect]
     Indication: INSOMNIA
     Dosage: 2 MG;HS;ORAL
     Route: 048
     Dates: start: 20060503, end: 20060504
  2. METOPROLOL TARTRATE [Concomitant]
  3. OMEGA 3 [Concomitant]
  4. GARLIC [Concomitant]

REACTIONS (2)
  - DRUG INEFFECTIVE [None]
  - INSOMNIA [None]
